FAERS Safety Report 14622990 (Version 2)
Quarter: 2018Q1

REPORT INFORMATION
  Report Type: Spontaneous
  Country: US (occurrence: US)
  Receive Date: 20180311
  Receipt Date: 20180312
  Transmission Date: 20180509
  Serious: No
  Sender: FDA-Public Use
  Company Number: US-009507513-1803USA002499

PATIENT
  Age: 61 Year
  Sex: Male

DRUGS (2)
  1. CUBICIN [Suspect]
     Active Substance: DAPTOMYCIN
     Dosage: 4 MG/KG, Q24H
     Route: 042
  2. PIPERACILLIN AND TAZOBACTAM [Concomitant]
     Active Substance: PIPERACILLIN SODIUM\TAZOBACTAM SODIUM
     Indication: PASTEURELLA INFECTION
     Dosage: 3.375 G, TID
     Route: 042

REACTIONS (1)
  - Product use in unapproved indication [Unknown]
